FAERS Safety Report 8916775 (Version 2)
Quarter: 2013Q1

REPORT INFORMATION
  Report Type: Spontaneous
  Country: US (occurrence: US)
  Receive Date: 20121120
  Receipt Date: 20130104
  Transmission Date: 20140127
  Serious: No
  Sender: FDA-Public Use
  Company Number: US-PFIZER INC-2012286853

PATIENT
  Age: 62 Year
  Sex: Female

DRUGS (4)
  1. INLYTA [Suspect]
     Indication: RENAL CANCER
     Dosage: 5 MG, 2X/DAY
     Dates: start: 20121015
  2. INLYTA [Suspect]
     Dosage: 5 MG, UNK
  3. INLYTA [Suspect]
     Dosage: 1 MG, UNK
  4. INLYTA [Suspect]
     Dosage: 7 MG, 2X/DAY
     Dates: start: 20121018

REACTIONS (3)
  - Dizziness [Unknown]
  - Diarrhoea [Unknown]
  - Blood potassium decreased [Unknown]
